FAERS Safety Report 6922136-3 (Version None)
Quarter: 2010Q3

REPORT INFORMATION
  Report Type: 
  Country: None (occurrence: None)
  Receive Date: 20100812
  Receipt Date: 20100810
  Transmission Date: 20110219
  Serious: Yes (Hospitalization)
  Sender: FDA-Public Use
  Company Number: US-GILEAD-2010-0030955

PATIENT
  Age: 90 Year
  Sex: Female
  Weight: 62.652 kg

DRUGS (15)
  1. LETAIRIS [Suspect]
     Indication: PULMONARY ARTERIAL HYPERTENSION
     Route: 048
     Dates: start: 20100610
  2. BUMETANIDE [Concomitant]
  3. PREDNISONE [Concomitant]
  4. FUROSEMIDE [Concomitant]
  5. PULMICORT [Concomitant]
  6. BROVANA [Concomitant]
  7. ASPIRIN [Concomitant]
  8. KLOR-CON [Concomitant]
  9. HYDROCORTISONE [Concomitant]
  10. ALPRAZOLAM [Concomitant]
  11. CLARITIN [Concomitant]
  12. AFRIN [Concomitant]
  13. ZANTAC [Concomitant]
  14. CARAFATE [Concomitant]
  15. MAXI-VITE [Concomitant]

REACTIONS (2)
  - FATIGUE [None]
  - OEDEMA PERIPHERAL [None]
